FAERS Safety Report 12765279 (Version 4)
Quarter: 2017Q1

REPORT INFORMATION
  Report Type: Spontaneous
  Country: US (occurrence: US)
  Receive Date: 20160921
  Receipt Date: 20170103
  Transmission Date: 20170428
  Serious: Yes (Hospitalization, Other)
  Sender: FDA-Public Use
  Company Number: US-PFIZER INC-2016437835

PATIENT
  Age: 70 Year
  Sex: Female
  Weight: 94 kg

DRUGS (8)
  1. GENTAMICIN SULFATE. [Suspect]
     Active Substance: GENTAMICIN SULFATE
     Indication: SKIN DISORDER
     Dosage: 40 MG/ML, UNK (IN NS 100ML) AT 500MG TO 380 MG, EVERY 48 HOURS
     Route: 042
     Dates: start: 20160812
  2. PRO-STATIN [Concomitant]
     Dosage: 30 ML, DAILY
  3. ZOFRAN [Concomitant]
     Active Substance: ONDANSETRON HYDROCHLORIDE
     Indication: NAUSEA
     Dosage: 4 MG, AS NEEDED (Q.6P.R.N)
  4. ANTIVERT [Concomitant]
     Active Substance: MECLIZINE HYDROCHLORIDE
     Dosage: 12.5 MG, 3X/DAY (P.R.N)
  5. NOVOLOG [Concomitant]
     Active Substance: INSULIN ASPART
     Indication: DIABETES MELLITUS
     Dosage: SLIDING SCALE DOSE
  6. RIFAMPIN. [Concomitant]
     Active Substance: RIFAMPIN
     Dosage: 300 MG, 2X/DAY
  7. LISINOPRIL. [Concomitant]
     Active Substance: LISINOPRIL
     Indication: BLOOD PRESSURE ABNORMAL
     Dosage: 20-25 MG, 1 DF, DAILY
  8. ZYVOX [Concomitant]
     Active Substance: LINEZOLID
     Dosage: 600 MG, 2X/DAY

REACTIONS (13)
  - Gait disturbance [Unknown]
  - Hypomagnesaemia [Unknown]
  - Osteomyelitis [Unknown]
  - Ototoxicity [Not Recovered/Not Resolved]
  - Blood alkaline phosphatase increased [Unknown]
  - Drug ineffective [Unknown]
  - Blood creatinine increased [Recovered/Resolved]
  - Malnutrition [Unknown]
  - Dizziness [Recovered/Resolved]
  - Vertigo [Unknown]
  - Hypocalcaemia [Unknown]
  - Vomiting [Unknown]
  - Hypokalaemia [Recovered/Resolved]

NARRATIVE: CASE EVENT DATE: 20160812
